FAERS Safety Report 11981583 (Version 2)
Quarter: 2016Q1

REPORT INFORMATION
  Report Type: Spontaneous
  Country: GB (occurrence: None)
  Receive Date: 20160128
  Receipt Date: 20160307
  Transmission Date: 20160526
  Serious: Yes (Hospitalization)
  Sender: FDA-Public Use
  Company Number: GB2016K0230SPO

PATIENT
  Age: 57 Year
  Sex: Female
  Weight: 73 kg

DRUGS (1)
  1. LANSOPRAZOLE WORLD (LANSOPRAZOLE) UNKNOWN (LOT # 150163) [Suspect]
     Active Substance: LANSOPRAZOLE
     Indication: GASTROOESOPHAGEAL REFLUX DISEASE
     Route: 048
     Dates: start: 20140107, end: 20150628

REACTIONS (19)
  - Hypertension [None]
  - Muscle twitching [None]
  - Urticaria [None]
  - Erythema [None]
  - Oropharyngeal pain [None]
  - Lethargy [None]
  - Fatigue [None]
  - Hepatic function abnormal [None]
  - Autoimmune disorder [None]
  - Dysstasia [None]
  - Finger deformity [None]
  - Peripheral swelling [None]
  - Malaise [None]
  - Decreased appetite [None]
  - Blister [None]
  - Pallor [None]
  - Dyspnoea [None]
  - Dry mouth [None]
  - Paraesthesia [None]

NARRATIVE: CASE EVENT DATE: 201501
